FAERS Safety Report 10057223 (Version 3)
Quarter: 2014Q2

REPORT INFORMATION
  Report Type: Report from Study
  Country: CA (occurrence: CA)
  Receive Date: 20140403
  Receipt Date: 20140425
  Transmission Date: 20141212
  Serious: Yes (Other)
  Sender: FDA-Public Use
  Company Number: CA-BRISTOL-MYERS SQUIBB COMPANY-19990837

PATIENT
  Age: 69 Year
  Sex: Female

DRUGS (10)
  1. ORENCIA FOR INJ 250 MG/VIAL [Suspect]
     Indication: RHEUMATOID ARTHRITIS
     Dosage: 1DF:750, UNIT: NOS?3J75953-EXP-JL2016?1 DF:250 MG:3J7953:INJECTION POWDER LYOPHILIZED FOR SOLUTION
     Dates: start: 20130114, end: 20140103
  2. GABAPENTIN [Concomitant]
  3. PARIET [Concomitant]
  4. VENLAFAXINE HCL [Concomitant]
  5. IMOVANE [Concomitant]
  6. VERAPAMIL [Concomitant]
  7. HYDROMORPH [Concomitant]
  8. HYDROMORPH CONTIN [Concomitant]
  9. PRAMIPEXOLE HCL [Concomitant]
  10. TYLENOL [Concomitant]

REACTIONS (4)
  - Pneumonia [Unknown]
  - Pulmonary fibrosis [Unknown]
  - Dry skin [Unknown]
  - Drug ineffective [Unknown]
